FAERS Safety Report 9678399 (Version 3)
Quarter: 2014Q1

REPORT INFORMATION
  Report Type: Spontaneous
  Country: GB (occurrence: GB)
  Receive Date: 20131108
  Receipt Date: 20140217
  Transmission Date: 20141002
  Serious: Yes (Hospitalization)
  Sender: FDA-Public Use
  Company Number: GB-JNJFOC-20131100146

PATIENT
  Sex: Male

DRUGS (1)
  1. DUROGESIC DTRANS [Suspect]
     Indication: PRODUCT USED FOR UNKNOWN INDICATION
     Dosage: USED ONE AND A HALF PATCHES OF FENTANYL 12.5 UG/HR PATCH
     Route: 062

REACTIONS (2)
  - Mental disorder [Unknown]
  - Wrong technique in drug usage process [Unknown]
